FAERS Safety Report 10655183 (Version 1)
Quarter: 2014Q4

REPORT INFORMATION
  Report Type: Spontaneous
  Country: GB (occurrence: GB)
  Receive Date: 20141216
  Receipt Date: 20141216
  Transmission Date: 20150529
  Serious: Yes (Hospitalization, Other)
  Sender: FDA-Public Use
  Company Number: GB-WATSON-2014-26483

PATIENT
  Sex: Male

DRUGS (8)
  1. VITAMIN B COMPLEX                  /00171501/ [Concomitant]
     Active Substance: NIACINAMIDE\RIBOFLAVIN\THIAMINE HYDROCHLORIDE
     Indication: ALCOHOL ABUSE
     Dosage: 1 DF, TID
     Route: 048
  2. THIAMINE [Concomitant]
     Active Substance: THIAMINE
     Indication: ALCOHOL ABUSE
     Dosage: 100 MG, TID
     Route: 048
  3. TRAZODONE [Concomitant]
     Active Substance: TRAZODONE HYDROCHLORIDE
     Indication: DEPRESSION
     Dosage: 75 MG, QPM
     Route: 048
     Dates: end: 20141103
  4. VENLAFAXINE [Concomitant]
     Active Substance: VENLAFAXINE HYDROCHLORIDE
     Indication: DEPRESSION
     Dosage: 75 MG, BID
     Route: 048
  5. BACLOFEN (UNKNOWN) [Suspect]
     Active Substance: BACLOFEN
     Indication: ALCOHOLISM
     Dosage: 10 MG, TID
     Route: 048
     Dates: start: 20141114, end: 20141120
  6. LORAZEPAM. [Concomitant]
     Active Substance: LORAZEPAM
     Indication: PRODUCT USED FOR UNKNOWN INDICATION
     Dosage: 1 MG, DAILY
     Route: 048
  7. BUSCOPAN [Concomitant]
     Active Substance: BUTYLSCOPOLAMINE BROMIDE
     Indication: PRODUCT USED FOR UNKNOWN INDICATION
     Dosage: 20 MG, UNK
     Route: 048
  8. CANDESARTAN [Concomitant]
     Active Substance: CANDESARTAN
     Indication: HYPERTENSION
     Dosage: 16 MG, DAILY
     Route: 048

REACTIONS (1)
  - Confusional state [Not Recovered/Not Resolved]
